FAERS Safety Report 8343243-7 (Version None)
Quarter: 2012Q2

REPORT INFORMATION
  Report Type: 
  Country: None (occurrence: None)
  Receive Date: 20120503
  Receipt Date: 20120503
  Transmission Date: 20120825
  Serious: Yes (Hospitalization)
  Sender: FDA-Public Use
  Company Number: None

PATIENT
  Age: 55 Year
  Sex: Male

DRUGS (2)
  1. RIBAVIRIN [Suspect]
     Indication: HEPATITIS C
     Dosage: 400MG TWICE DAILY
     Dates: start: 20111201
  2. PEG-INTRON [Suspect]

REACTIONS (1)
  - TRANSFUSION [None]
